FAERS Safety Report 26151306 (Version 1)
Quarter: 2025Q4

REPORT INFORMATION
  Report Type: Spontaneous
  Country: TW (occurrence: TW)
  Receive Date: 20251212
  Receipt Date: 20251212
  Transmission Date: 20260117
  Serious: Yes (Other)
  Sender: ALEXION PHARMACEUTICALS
  Company Number: TW-AstraZeneca-CH-01009015A

PATIENT
  Age: 80 Year
  Sex: Male

DRUGS (1)
  1. LYNPARZA [Suspect]
     Active Substance: OLAPARIB
     Indication: Prostate cancer metastatic
     Dosage: 150 MILLIGRAM, BID
     Route: 065
     Dates: start: 2024

REACTIONS (2)
  - Myelosuppression [Unknown]
  - Diarrhoea [Unknown]
